FAERS Safety Report 17439453 (Version 1)
Quarter: 2020Q1

REPORT INFORMATION
  Report Type: Spontaneous
  Country: US (occurrence: US)
  Receive Date: 20200220
  Receipt Date: 20200220
  Transmission Date: 20200409
  Serious: No
  Sender: FDA-Public Use
  Company Number: US-ASTRAZENECA-2020SE16442

PATIENT
  Age: 23735 Day
  Sex: Female
  Weight: 73.5 kg

DRUGS (1)
  1. SYMLIN [Suspect]
     Active Substance: PRAMLINTIDE ACETATE
     Indication: WEIGHT DECREASED
     Dosage: 120.0UG AS REQUIRED
     Route: 058
     Dates: start: 2016

REACTIONS (4)
  - Visual impairment [Unknown]
  - Intentional device misuse [Unknown]
  - Intentional product misuse [Not Recovered/Not Resolved]
  - Device issue [Unknown]

NARRATIVE: CASE EVENT DATE: 20191101
